FAERS Safety Report 17290116 (Version 2)
Quarter: 2021Q1

REPORT INFORMATION
  Report Type: Report from Study
  Country: US (occurrence: US)
  Receive Date: 20200120
  Receipt Date: 20210123
  Transmission Date: 20210419
  Serious: No
  Sender: FDA-Public Use
  Company Number: NVSC2020US012765

PATIENT
  Sex: Female

DRUGS (1)
  1. ENTRESTO [Suspect]
     Active Substance: SACUBITRIL\VALSARTAN
     Indication: CARDIAC FAILURE
     Dosage: 24 MG, QD (24/26 MG)
     Route: 048

REACTIONS (9)
  - Mood altered [Unknown]
  - Feeling abnormal [Unknown]
  - Depression [Unknown]
  - Nervousness [Unknown]
  - Dyspepsia [Unknown]
  - Anxiety [Unknown]
  - Irritability [Unknown]
  - Abdominal discomfort [Unknown]
  - Malaise [Unknown]
